FAERS Safety Report 8151563-4 (Version None)
Quarter: 2012Q1

REPORT INFORMATION
  Report Type: 
  Country: None (occurrence: None)
  Receive Date: 20120220
  Receipt Date: 20120203
  Transmission Date: 20120608
  Serious: Yes (Hospitalization, Other)
  Sender: FDA-Public Use
  Company Number: US-ROCHE-1041347

PATIENT
  Sex: Male

DRUGS (8)
  1. ASPIRIN [Concomitant]
  2. IRON [Concomitant]
  3. COUMADIN [Concomitant]
  4. GLYBURIDE [Concomitant]
  5. SENNA-COL [Concomitant]
  6. XELODA [Suspect]
     Indication: COLORECTAL CANCER METASTATIC
     Route: 048
     Dates: start: 20110708
  7. DOXAZOSIN [Concomitant]
  8. DEXAMETHASONE [Concomitant]

REACTIONS (5)
  - THROMBOSIS [None]
  - STOMATITIS [None]
  - CEREBROVASCULAR ACCIDENT [None]
  - HAEMOGLOBIN DECREASED [None]
  - HYPERGLYCAEMIA [None]
